FAERS Safety Report 5817335-8 (Version None)
Quarter: 2008Q3

REPORT INFORMATION
  Report Type: 
  Country: None (occurrence: None)
  Receive Date: 20080715
  Receipt Date: 20080630
  Transmission Date: 20090109
  Serious: Yes (Hospitalization)
  Sender: FDA-Public Use
  Company Number: DSA_31934-2008

PATIENT
  Sex: Female

DRUGS (4)
  1. TAVOR /00273201/  (TAVOR - LORAZEPAM) 0.5 MG, (NOT SPECIFIED) [Suspect]
     Dosage: 10 MG 1X NOT THE PRESCRIBED AMOUNT ORAL)
     Route: 048
     Dates: start: 20080526, end: 20080526
  2. BROMAZEPAM (BROMAZEPAM) 6 MG [Suspect]
     Dosage: 180 MG 1X NOT THE PRESCRIBED AMOUNT ORAL
     Route: 048
     Dates: start: 20080526, end: 20080526
  3. DIAZEPAM [Suspect]
     Dosage: 500 MG 1X NOT THE PRESCRIBED AMOUNT ORAL
     Route: 048
     Dates: start: 20080526, end: 20080526
  4. DOXEPIN HCL [Suspect]
     Dosage: 350 MG 1X NOT THE PRESCRIBED AMOUNT ORAL
     Route: 048
     Dates: start: 20080526, end: 20080526

REACTIONS (4)
  - ASPIRATION [None]
  - MULTIPLE DRUG OVERDOSE INTENTIONAL [None]
  - RESPIRATORY FAILURE [None]
  - SUICIDE ATTEMPT [None]
